FAERS Safety Report 7719626-2 (Version None)
Quarter: 2011Q3

REPORT INFORMATION
  Report Type: 
  Country: None (occurrence: None)
  Receive Date: 20110830
  Receipt Date: 20110817
  Transmission Date: 20111222
  Serious: Yes (Hospitalization)
  Sender: FDA-Public Use
  Company Number: DE-GENENTECH-323516

PATIENT
  Sex: Female

DRUGS (1)
  1. MABTHERA [Suspect]
     Indication: RHEUMATOID ARTHRITIS
     Dosage: UNK
     Route: 065

REACTIONS (5)
  - PYREXIA [None]
  - C-REACTIVE PROTEIN INCREASED [None]
  - BLOOD IMMUNOGLOBULIN G DECREASED [None]
  - WEIGHT DECREASED [None]
  - CD4 LYMPHOCYTES DECREASED [None]
